FAERS Safety Report 17318551 (Version 1)
Quarter: 2020Q1

REPORT INFORMATION
  Report Type: Spontaneous
  Country: US (occurrence: US)
  Receive Date: 20200124
  Receipt Date: 20200124
  Transmission Date: 20200409
  Serious: Yes (Death)
  Sender: FDA-Public Use
  Company Number: NVSC2020US015059

PATIENT
  Sex: Male

DRUGS (1)
  1. PROMACTA [Suspect]
     Active Substance: ELTROMBOPAG OLAMINE
     Indication: GRAFT VERSUS HOST DISEASE
     Dosage: 50 MG, QD
     Route: 048
     Dates: start: 201910

REACTIONS (2)
  - Product use in unapproved indication [Unknown]
  - Death [Fatal]
